FAERS Safety Report 25807134 (Version 1)
Quarter: 2025Q3

REPORT INFORMATION
  Report Type: Spontaneous
  Country: US (occurrence: None)
  Receive Date: 20250915
  Receipt Date: 20250915
  Transmission Date: 20251021
  Serious: Yes (Hospitalization)
  Sender: FDA-CTU
  Company Number: None

PATIENT
  Age: 50 Year
  Sex: Female

DRUGS (2)
  1. AMBRISENTAN [Suspect]
     Active Substance: AMBRISENTAN
     Indication: Pulmonary arterial hypertension
  2. DILTIAZEM [Suspect]
     Active Substance: DILTIAZEM

REACTIONS (4)
  - Nausea [None]
  - Pulmonary hypertension [None]
  - Treatment noncompliance [None]
  - Drug intolerance [None]
